FAERS Safety Report 13616600 (Version 1)
Quarter: 2017Q2

REPORT INFORMATION
  Report Type: Spontaneous
  Country: US (occurrence: US)
  Receive Date: 20170606
  Receipt Date: 20170606
  Transmission Date: 20170830
  Serious: No
  Sender: FDA-Public Use
  Company Number: US-SA-2016SA097519

PATIENT
  Sex: Male
  Weight: 215 kg

DRUGS (6)
  1. TOUJEO [Concomitant]
     Active Substance: INSULIN GLARGINE
     Dosage: FREQUENCY: NIGHT NAD DAT (MORNING)
  2. HUMALOG [Concomitant]
     Active Substance: INSULIN LISPRO
     Indication: DIABETES MELLITUS
     Dosage: STRENGTH: 25MG
  3. FUROSEMIDE. [Concomitant]
     Active Substance: FUROSEMIDE
     Dosage: STRENGTH: 80MG
  4. NOVOLOG [Concomitant]
     Active Substance: INSULIN ASPART
  5. LANTUS [Suspect]
     Active Substance: INSULIN GLARGINE
     Indication: DIABETES MELLITUS
     Route: 065
  6. SOLOSTAR [Concomitant]
     Active Substance: DEVICE

REACTIONS (4)
  - Gastrointestinal pain [Unknown]
  - Flatulence [Unknown]
  - Abdominal pain upper [Unknown]
  - Weight decreased [Unknown]
